APPROVED DRUG PRODUCT: LOPERAMIDE HYDROCHLORIDE
Active Ingredient: LOPERAMIDE HYDROCHLORIDE
Strength: 2MG
Dosage Form/Route: CAPSULE;ORAL
Application: A216876 | Product #001 | TE Code: AB
Applicant: RUBICON RESEARCH LTD
Approved: Jan 26, 2023 | RLD: No | RS: No | Type: RX